FAERS Safety Report 8355159-0 (Version None)
Quarter: 2012Q2

REPORT INFORMATION
  Report Type: 
  Country: None (occurrence: None)
  Receive Date: 20120511
  Receipt Date: 20120426
  Transmission Date: 20120825
  Serious: Yes (Other)
  Sender: FDA-Public Use
  Company Number: CHPA2012CA010024

PATIENT
  Age: 32 Year
  Sex: Male

DRUGS (1)
  1. HABITROL [Suspect]
     Indication: SMOKING CESSATION THERAPY
     Dosage: 21 MG, QD
     Route: 062
     Dates: start: 20070101, end: 20070101

REACTIONS (6)
  - TREATMENT NONCOMPLIANCE [None]
  - OVERDOSE [None]
  - CHEST PAIN [None]
  - MYOCARDIAL INFARCTION [None]
  - CYST [None]
  - DYSPNOEA [None]
